FAERS Safety Report 21397726 (Version 2)
Quarter: 2022Q4

REPORT INFORMATION
  Report Type: Spontaneous
  Country: DE (occurrence: None)
  Receive Date: 20220930
  Receipt Date: 20221004
  Transmission Date: 20230113
  Serious: Yes (Death, Hospitalization, Other)
  Sender: FDA-Public Use
  Company Number: 2022A332338

PATIENT
  Age: 77 Year

DRUGS (4)
  1. GEFITINIB [Suspect]
     Active Substance: GEFITINIB
     Route: 048
     Dates: start: 201703, end: 201810
  2. OSIMERTINIB [Suspect]
     Active Substance: OSIMERTINIB
     Route: 048
     Dates: start: 201807, end: 202111
  3. DABRAFENIB [Concomitant]
     Active Substance: DABRAFENIB
     Route: 065
  4. TRAMETINIB [Concomitant]
     Active Substance: TRAMETINIB
     Route: 065

REACTIONS (8)
  - Disorientation [Fatal]
  - General physical health deterioration [Fatal]
  - Metastases to pleura [Unknown]
  - Metastases to lymph nodes [Unknown]
  - Malignant neoplasm progression [Unknown]
  - Dyspnoea [Unknown]
  - Metastases to meninges [Unknown]
  - COVID-19 [Unknown]

NARRATIVE: CASE EVENT DATE: 20180501
